FAERS Safety Report 10637053 (Version 1)
Quarter: 2014Q4

REPORT INFORMATION
  Report Type: Spontaneous
  Country: US (occurrence: None)
  Receive Date: 20141204
  Receipt Date: 20141204
  Transmission Date: 20150529
  Serious: Yes (Other)
  Sender: FDA-Public Use
  Company Number: None

PATIENT
  Age: 13 Year
  Sex: Male
  Weight: 68.04 kg

DRUGS (1)
  1. METHYLPHENIDATE 54 MG MALLINCKRODT [Suspect]
     Active Substance: METHYLPHENIDATE
     Indication: ATTENTION DEFICIT/HYPERACTIVITY DISORDER
     Dosage: 1 TAB ONCE DAILY

REACTIONS (3)
  - Product substitution issue [None]
  - Therapeutic response decreased [None]
  - Therapeutic response changed [None]
